FAERS Safety Report 5881087-6 (Version None)
Quarter: 2008Q3

REPORT INFORMATION
  Report Type: 
  Country: None (occurrence: None)
  Receive Date: 20080912
  Receipt Date: 20080616
  Transmission Date: 20090109
  Serious: Yes (Hospitalization)
  Sender: FDA-Public Use
  Company Number: US-ABBOTT-08P-163-0458449-00

PATIENT
  Sex: Male
  Weight: 81.72 kg

DRUGS (9)
  1. HUMIRA [Suspect]
     Indication: RHEUMATOID ARTHRITIS
     Route: 050
     Dates: end: 20070901
  2. METHOTREXATE [Concomitant]
     Indication: RHEUMATOID ARTHRITIS
     Dosage: 8 TABLETS WEEKLY
     Route: 048
  3. HYZAAR [Concomitant]
     Indication: HYPERTENSION
     Dosage: 50/12.5 DAILY
     Route: 048
  4. ATENOLOL [Concomitant]
     Indication: HYPERTENSION
     Route: 048
  5. PREGABALIN [Concomitant]
     Indication: PAIN
     Route: 048
  6. CLOPIDOGREL [Concomitant]
     Indication: ANTICOAGULANT THERAPY
     Route: 048
  7. ACETYLSALICYLIC ACID SRT [Concomitant]
     Indication: ANTICOAGULANT THERAPY
     Dosage: 1 A DAY
     Route: 048
  8. HYDROCODONE BITARTRATE [Concomitant]
     Indication: PAIN
     Dosage: 10/500-1 TABLET AS NEEDED
     Route: 048
  9. FAMOTIDINE [Concomitant]
     Indication: GASTRIC DISORDER
     Route: 048

REACTIONS (3)
  - COUGH [None]
  - NASOPHARYNGITIS [None]
  - VIRUS SEROLOGY TEST POSITIVE [None]
